FAERS Safety Report 16512997 (Version 3)
Quarter: 2019Q3

REPORT INFORMATION
  Report Type: Spontaneous
  Country: DK (occurrence: DK)
  Receive Date: 20190702
  Receipt Date: 20190709
  Transmission Date: 20191004
  Serious: Yes (Other)
  Sender: FDA-Public Use
  Company Number: DK-PFIZER INC-2019272748

PATIENT
  Age: 31 Year
  Sex: Male

DRUGS (5)
  1. METHOTREXATE. [Suspect]
     Active Substance: METHOTREXATE
     Indication: OSTEOSARCOMA
     Dosage: UNK
     Dates: start: 20160601
  2. ETOPOSIDE. [Concomitant]
     Active Substance: ETOPOSIDE
     Indication: OSTEOSARCOMA
     Dosage: UNK
     Dates: start: 201610
  3. CISPLATIN. [Suspect]
     Active Substance: CISPLATIN
     Indication: OSTEOSARCOMA
     Dosage: UNK
     Dates: start: 20160601
  4. DOXORUBICIN HCL [Suspect]
     Active Substance: DOXORUBICIN HYDROCHLORIDE
     Indication: OSTEOSARCOMA
     Dosage: UNK
     Dates: start: 20160601
  5. HOLOXAN [Suspect]
     Active Substance: IFOSFAMIDE
     Indication: OSTEOSARCOMA
     Dosage: UNK
     Dates: start: 201610

REACTIONS (6)
  - Renal impairment [Recovering/Resolving]
  - Flank pain [Unknown]
  - Hypoacusis [Unknown]
  - Anaemia [Unknown]
  - Tinnitus [Unknown]
  - Hepatic function abnormal [Unknown]

NARRATIVE: CASE EVENT DATE: 20160701
